FAERS Safety Report 7960779-9 (Version None)
Quarter: 2011Q4

REPORT INFORMATION
  Report Type: 
  Country: None (occurrence: None)
  Receive Date: 20111207
  Receipt Date: 20111128
  Transmission Date: 20120403
  Serious: Yes (Hospitalization, Other)
  Sender: FDA-Public Use
  Company Number: NL-BIOGENIDEC-2011BI022466

PATIENT
  Age: 18 Year
  Sex: Female

DRUGS (3)
  1. TYSABRI [Suspect]
     Indication: RELAPSING-REMITTING MULTIPLE SCLEROSIS
     Route: 042
     Dates: start: 20110201, end: 20110202
  2. ACETAMINOPHEN [Concomitant]
  3. ACETAMINOPHEN W/ CODEINE [Concomitant]

REACTIONS (4)
  - PYREXIA [None]
  - HEPATIC FUNCTION ABNORMAL [None]
  - MYALGIA [None]
  - ADJUSTMENT DISORDER WITH DEPRESSED MOOD [None]
